FAERS Safety Report 6601645-0 (Version None)
Quarter: 2010Q1

REPORT INFORMATION
  Report Type: 
  Country: None (occurrence: None)
  Receive Date: 20100225
  Receipt Date: 20100211
  Transmission Date: 20100710
  Serious: Yes (Hospitalization)
  Sender: FDA-Public Use
  Company Number: CN-ROCHE-685046

PATIENT
  Sex: Female
  Weight: 70 kg

DRUGS (6)
  1. TOCILIZUMAB [Suspect]
     Indication: RHEUMATOID ARTHRITIS
     Route: 042
     Dates: start: 20060821, end: 20100203
  2. TOCILIZUMAB [Suspect]
     Dosage: THE PATIENT WAS PREVIOUSLY ENROLLED IN WA18063.
     Route: 065
  3. AMLODIPINE [Concomitant]
     Dates: start: 20080101
  4. LOSARTAN POTASSIUM [Concomitant]
     Dates: start: 20080101
  5. METOPROLOL TARTRATE [Concomitant]
     Dates: start: 20070101
  6. ATORVASTATIN CALCIUM [Concomitant]
     Dates: start: 20100128

REACTIONS (1)
  - TRANSIENT ISCHAEMIC ATTACK [None]
